FAERS Safety Report 14343659 (Version 1)
Quarter: 2018Q1

REPORT INFORMATION
  Report Type: Spontaneous
  Country: US (occurrence: US)
  Receive Date: 20180102
  Receipt Date: 20180102
  Transmission Date: 20180509
  Serious: No
  Sender: FDA-Public Use
  Company Number: US-PFIZER INC-2018000585

PATIENT
  Age: 70 Year
  Sex: Female
  Weight: 85.73 kg

DRUGS (1)
  1. ERYTHROMYCIN. [Suspect]
     Active Substance: ERYTHROMYCIN

REACTIONS (3)
  - Abdominal pain upper [Unknown]
  - Drug intolerance [Unknown]
  - Drug hypersensitivity [Unknown]
